FAERS Safety Report 18321571 (Version 2)
Quarter: 2020Q4

REPORT INFORMATION
  Report Type: Spontaneous
  Country: AT (occurrence: AT)
  Receive Date: 20200928
  Receipt Date: 20201001
  Transmission Date: 20210113
  Serious: Yes (Death)
  Sender: FDA-Public Use
  Company Number: AT-PFIZER INC-2020301843

PATIENT
  Age: 71 Year
  Sex: Female

DRUGS (1)
  1. IBRANCE [Suspect]
     Active Substance: PALBOCICLIB
     Indication: ENDOMETRIAL CANCER
     Dosage: 125 MG
     Dates: start: 20200807

REACTIONS (3)
  - Product use in unapproved indication [Unknown]
  - Neoplasm progression [Fatal]
  - Off label use [Unknown]

NARRATIVE: CASE EVENT DATE: 20200807
